FAERS Safety Report 8468960 (Version 3)
Quarter: 2013Q2

REPORT INFORMATION
  Report Type: Spontaneous
  Country: US (occurrence: US)
  Receive Date: 20120321
  Receipt Date: 20130507
  Transmission Date: 20140414
  Serious: Yes (Hospitalization, Other)
  Sender: FDA-Public Use
  Company Number: US-ROCHE-791902

PATIENT
  Age: 19 Year
  Sex: Male
  Weight: 74 kg

DRUGS (2)
  1. ACCUTANE [Suspect]
     Indication: ACNE
     Route: 048
     Dates: start: 198809, end: 19890211
  2. ACCUTANE [Suspect]
     Route: 048
     Dates: start: 19950411, end: 199510

REACTIONS (8)
  - Colitis ulcerative [Unknown]
  - Intestinal obstruction [Unknown]
  - Inflammatory bowel disease [Unknown]
  - Osteonecrosis [Unknown]
  - Emotional distress [Unknown]
  - Dry skin [Unknown]
  - Epistaxis [Unknown]
  - Lip dry [Unknown]
